FAERS Safety Report 6231080-9 (Version None)
Quarter: 2009Q2

REPORT INFORMATION
  Report Type: 
  Country: None (occurrence: None)
  Receive Date: 20090611
  Receipt Date: 20090527
  Transmission Date: 20091009
  Serious: Yes (Other)
  Sender: FDA-Public Use
  Company Number: 20090164

PATIENT
  Age: 76 Year
  Sex: Female

DRUGS (8)
  1. VENOFER [Suspect]
     Dosage: 266MG/DAY INTRAVENOUS
     Route: 042
     Dates: start: 20090202, end: 20090310
  2. CALCIUM SUPPLEMENT [Concomitant]
  3. CORTEF [Concomitant]
  4. DIOVAN [Concomitant]
  5. MIRALAX [Concomitant]
  6. ACULAR LS (EYE DROPS) (KETOROLAC TROMETHAMINE) [Concomitant]
  7. PRED FORTE (EYE DROPS) (PREDNISOLONE ACETATE) [Concomitant]
  8. SENOKOT (SENNOSIDES) [Concomitant]

REACTIONS (4)
  - BLOOD PRESSURE INCREASED [None]
  - NO THERAPEUTIC RESPONSE [None]
  - TRANSIENT ISCHAEMIC ATTACK [None]
  - VITAMIN B12 DECREASED [None]
